FAERS Safety Report 7702990 (Version 2)
Quarter: 2012Q4

REPORT INFORMATION
  Report Type: 
  Country: CA (occurrence: CA)
  Receive Date: 20101210
  Receipt Date: 20121218
  Transmission Date: 20130627
  Serious: No
  Sender: FDA-Public Use
  Company Number: PHHY2010CA81098

PATIENT
  Sex: Female

DRUGS (3)
  1. ACLASTA [Suspect]
     Indication: OSTEOPOROSIS
     Dosage: UNK
     Route: 042
     Dates: start: 20100126
  2. ACLASTA [Suspect]
     Dosage: UNK
     Route: 042
     Dates: start: 20110127
  3. ACLASTA [Suspect]
     Dosage: UNK
     Route: 042
     Dates: start: 20120127

REACTIONS (1)
  - Back pain [Unknown]
